FAERS Safety Report 9719238 (Version 1)
Quarter: 2013Q4

REPORT INFORMATION
  Report Type: Report from Study
  Country: BR (occurrence: BR)
  Receive Date: 20131127
  Receipt Date: 20131127
  Transmission Date: 20140711
  Serious: Yes (Hospitalization, Other)
  Sender: FDA-Public Use
  Company Number: PHHY2013BR134977

PATIENT
  Sex: Male
  Weight: 68 kg

DRUGS (2)
  1. ONBREZ [Suspect]
     Indication: LUNG DISORDER
     Dosage: 1 DF, QD (1 CAPSULE, A DAY)
  2. ONBREZ [Suspect]
     Indication: OFF LABEL USE

REACTIONS (2)
  - Lung disorder [Recovered/Resolved]
  - Renal disorder [Recovered/Resolved]
